FAERS Safety Report 14495457 (Version 1)
Quarter: 2018Q1

REPORT INFORMATION
  Report Type: Spontaneous
  Country: US (occurrence: US)
  Receive Date: 20180206
  Receipt Date: 20180206
  Transmission Date: 20180509
  Serious: No
  Sender: FDA-Public Use
  Company Number: US-SMITH AND NEPHEW, INC-2017SMT00247

PATIENT
  Age: 60 Year
  Sex: Male
  Weight: 133.79 kg

DRUGS (2)
  1. UNSPECIFIED OTHER MEDICATIONS [Concomitant]
     Active Substance: UNSPECIFIED INGREDIENT
     Dosage: ^I^VE GOT 25 DIFFERENT MEDS I TAKE.^
  2. REGRANEX [Suspect]
     Active Substance: BECAPLERMIN
     Indication: ULCER
     Dosage: UNK UNK, 1X/DAY
     Route: 061
     Dates: start: 201703, end: 20170420

REACTIONS (2)
  - Bacterial infection [Unknown]
  - Drug ineffective [Recovering/Resolving]

NARRATIVE: CASE EVENT DATE: 201704
